FAERS Safety Report 19966910 (Version 2)
Quarter: 2021Q4

REPORT INFORMATION
  Report Type: Spontaneous
  Country: IS (occurrence: IS)
  Receive Date: 20211019
  Receipt Date: 20211118
  Transmission Date: 20220303
  Serious: Yes (Hospitalization)
  Sender: FDA-Public Use
  Company Number: None

PATIENT
  Age: 69 Year
  Sex: Male

DRUGS (3)
  1. KEYTRUDA [Suspect]
     Active Substance: PEMBROLIZUMAB
     Indication: Neoplasm malignant
     Dosage: 200 MG 1 X IV EVERY 3 WEEKS
     Route: 042
     Dates: start: 20210429
  2. PEMETREXED [Suspect]
     Active Substance: PEMETREXED
     Indication: Neoplasm malignant
     Dosage: 950 MG IV EVERY 3 WEEKS
     Route: 042
     Dates: start: 20210429
  3. CARBOPLATIN [Suspect]
     Active Substance: CARBOPLATIN
     Indication: Neoplasm malignant
     Dosage: 405 MG / 4AUC EVERY 3 WEEKS
     Dates: start: 20210429

REACTIONS (4)
  - Hyperthyroidism [Recovering/Resolving]
  - Hyperthyroidism [Recovering/Resolving]
  - Atrial fibrillation [Recovering/Resolving]
  - Renal impairment [Recovering/Resolving]

NARRATIVE: CASE EVENT DATE: 20210819
